FAERS Safety Report 10035910 (Version 2)
Quarter: 2014Q2

REPORT INFORMATION
  Report Type: Report from Study
  Country: VE (occurrence: VE)
  Receive Date: 20140325
  Receipt Date: 20140402
  Transmission Date: 20141212
  Serious: Yes (Death, Hospitalization)
  Sender: FDA-Public Use
  Company Number: PHHY2014VE035202

PATIENT
  Age: 45 Year
  Sex: Female

DRUGS (3)
  1. AFINITOR [Suspect]
     Indication: BREAST CANCER
     Dosage: 10 MG, DAILY
     Route: 048
     Dates: start: 201312
  2. AROMASIN [Concomitant]
     Indication: BREAST CANCER
  3. AROMASIN [Concomitant]
     Indication: METASTASES TO LIVER

REACTIONS (3)
  - Respiratory arrest [Fatal]
  - Malnutrition [Unknown]
  - Dehydration [Unknown]
